FAERS Safety Report 10259655 (Version 3)
Quarter: 2014Q3

REPORT INFORMATION
  Report Type: Spontaneous
  Country: IT (occurrence: IT)
  Receive Date: 20140625
  Receipt Date: 20140730
  Transmission Date: 20150326
  Serious: Yes (Other)
  Sender: FDA-Public Use
  Company Number: IT-WATSON-2014-13426

PATIENT
  Age: 51 Year
  Sex: Female

DRUGS (5)
  1. CARDIRENE [Suspect]
     Active Substance: ASPIRIN DL-LYSINE
     Indication: HAEMANGIOMA OF SKIN
     Dosage: 75 MG, DAILY
     Route: 048
     Dates: start: 20050426, end: 20140131
  2. ANTRA                              /00661201/ [Suspect]
     Active Substance: OMEPRAZOLE
     Indication: PROPHYLAXIS AGAINST GASTROINTESTINAL ULCER
     Dosage: 20 MG, DAILY
     Route: 048
     Dates: start: 20030310, end: 20140131
  3. PRAZEPAM [Concomitant]
     Active Substance: PRAZEPAM
     Indication: ANXIETY
     Dosage: UNK
     Route: 048
  4. MELOXICAM. [Suspect]
     Active Substance: MELOXICAM
     Indication: MUSCULOSKELETAL CHEST PAIN
     Dosage: 15 MG, PRN
     Route: 048
     Dates: start: 20140101, end: 20140130
  5. RAMIPRIL (UNKNOWN) [Suspect]
     Active Substance: RAMIPRIL
     Indication: HYPERTENSION
     Dosage: 2.5 MG, DAILY
     Route: 048
     Dates: start: 20130926, end: 20140131

REACTIONS (4)
  - Hyperchlorhydria [Recovered/Resolved]
  - Drug interaction [Recovered/Resolved]
  - Presyncope [Recovered/Resolved]
  - Hypertension [Recovered/Resolved]

NARRATIVE: CASE EVENT DATE: 20140131
